FAERS Safety Report 10398924 (Version 1)
Quarter: 2014Q3

REPORT INFORMATION
  Report Type: Spontaneous
  Country: ES (occurrence: ES)
  Receive Date: 20140821
  Receipt Date: 20140821
  Transmission Date: 20150326
  Serious: Yes (Other)
  Sender: FDA-Public Use
  Company Number: PHHY2014ES103586

PATIENT
  Age: 17 Year
  Sex: Female

DRUGS (2)
  1. PARACETAMOL [Suspect]
     Active Substance: ACETAMINOPHEN
     Dosage: 1 G
     Route: 048
  2. PARACETAMOL [Suspect]
     Active Substance: ACETAMINOPHEN
     Dosage: 125 MG, ONCE/SINGLE

REACTIONS (5)
  - Ear pruritus [Unknown]
  - Hypersensitivity [Unknown]
  - Urticaria [Unknown]
  - Pharyngeal oedema [Unknown]
  - Dyspnoea [Unknown]
